FAERS Safety Report 10068467 (Version 3)
Quarter: 2014Q2

REPORT INFORMATION
  Report Type: Spontaneous
  Country: US (occurrence: US)
  Receive Date: 20140409
  Receipt Date: 20140530
  Transmission Date: 20141212
  Serious: No
  Sender: FDA-Public Use
  Company Number: US-TEVA-474495USA

PATIENT
  Age: 20 Year
  Sex: Female
  Weight: 82.63 kg

DRUGS (1)
  1. PARAGARD 380A [Suspect]
     Indication: CONTRACEPTION
     Route: 015
     Dates: start: 2010, end: 20140314

REACTIONS (2)
  - Medical device complication [Recovered/Resolved]
  - Device breakage [Recovered/Resolved]
